FAERS Safety Report 10548493 (Version 3)
Quarter: 2015Q1

REPORT INFORMATION
  Report Type: Spontaneous
  Country: US (occurrence: None)
  Receive Date: 20141024
  Receipt Date: 20150330
  Transmission Date: 20150720
  Serious: Yes (Other)
  Sender: FDA-Public Use
  Company Number: ADR-2014-01961

PATIENT
  Age: 75 Year
  Sex: Female

DRUGS (3)
  1. BACLOFEN. [Suspect]
     Active Substance: BACLOFEN
     Indication: PAIN
  2. DILAUDID [Suspect]
     Active Substance: HYDROMORPHONE HYDROCHLORIDE
     Indication: PAIN
  3. BUPIVACAINE [Suspect]
     Active Substance: BUPIVACAINE

REACTIONS (15)
  - Implant site infection [None]
  - Dysstasia [None]
  - Incorrect route of drug administration [None]
  - Neuralgia [None]
  - Secretion discharge [None]
  - Impaired healing [None]
  - Drug effect decreased [None]
  - Back pain [None]
  - Device deployment issue [None]
  - Blood pressure increased [None]
  - Burning sensation [None]
  - Device dislocation [None]
  - Fall [None]
  - Weight decreased [None]
  - Implant site discharge [None]
